FAERS Safety Report 5803430-6 (Version None)
Quarter: 2008Q2

REPORT INFORMATION
  Report Type: 
  Country: None (occurrence: None)
  Receive Date: 20080627
  Receipt Date: 20070928
  Transmission Date: 20081010
  Serious: Yes (Other)
  Sender: FDA-Public Use
  Company Number: 41288

PATIENT
  Age: 45 Year
  Sex: Female
  Weight: 85 kg

DRUGS (2)
  1. VECURONIUM BROMIDE [Suspect]
     Indication: ENDOTRACHEAL INTUBATION
     Dosage: 0.1/KG=9
     Dates: start: 20070924, end: 20070926
  2. SUX [Concomitant]

REACTIONS (1)
  - DRUG INEFFECTIVE [None]
